FAERS Safety Report 7146540-6 (Version None)
Quarter: 2010Q4

REPORT INFORMATION
  Report Type: 
  Country: None (occurrence: None)
  Receive Date: 20101208
  Receipt Date: 20101203
  Transmission Date: 20110411
  Serious: Yes (Other)
  Sender: FDA-Public Use
  Company Number: CHPA2010JP17339

PATIENT
  Age: 50 Year
  Sex: Female

DRUGS (2)
  1. NICOTINELL TTS (NCH) [Suspect]
     Indication: SMOKING CESSATION THERAPY
     Dosage: 52.5 MG, QD
     Route: 062
     Dates: start: 20100724, end: 20100819
  2. NICOTINELL TTS (NCH) [Suspect]
     Dosage: 17.5 MG, QD
     Route: 062
     Dates: start: 20100820, end: 20100901

REACTIONS (2)
  - DYSGEUSIA [None]
  - PAROSMIA [None]
